FAERS Safety Report 4586525-7 (Version None)
Quarter: 2005Q1

REPORT INFORMATION
  Report Type: 
  Country: None (occurrence: None)
  Receive Date: 20050218
  Receipt Date: 20040105
  Transmission Date: 20050727
  Serious: Yes (Other)
  Sender: FDA-Public Use
  Company Number: US-BRISTOL-MYERS SQUIBB COMPANY-12473757

PATIENT
  Age: 74 Year
  Sex: Female
  Weight: 59 kg

DRUGS (10)
  1. TAXOL [Suspect]
     Indication: OVARIAN CANCER
     Route: 042
     Dates: start: 20021230, end: 20030324
  2. CARBOPLATIN [Suspect]
     Dosage: DOSING FROM 05-MAY-2003 THROUGH 25-AUG-2003
     Dates: start: 20030529, end: 20030529
  3. COUMADIN [Concomitant]
     Dates: start: 20020701
  4. ZOFRAN [Concomitant]
     Dates: start: 20030101
  5. AMITRIPTYLINE [Concomitant]
     Dates: start: 20030401
  6. MULTIVITAMIN [Concomitant]
     Dosage: ^FOR A LONG TIME^
  7. THIAMINE HCL [Concomitant]
  8. MEGACE [Concomitant]
     Dates: start: 20020801
  9. PROTONIX [Concomitant]
     Indication: PAIN
  10. HYDROCODONE [Concomitant]
     Indication: PAIN

REACTIONS (3)
  - CARBUNCLE [None]
  - FATIGUE [None]
  - STOMATITIS [None]
